FAERS Safety Report 5471416-X (Version None)
Quarter: 2007Q3

REPORT INFORMATION
  Report Type: 
  Country: None (occurrence: None)
  Receive Date: 20070928
  Receipt Date: 20070919
  Transmission Date: 20080115
  Serious: Yes (Life-Threatening, Hospitalization)
  Sender: FDA-Public Use
  Company Number: JP-SANOFI-SYNTHELABO-A01200710316

PATIENT
  Age: 797 Month
  Sex: Male
  Weight: 61.8 kg

DRUGS (6)
  1. METHYCOBAL [Concomitant]
     Indication: DIABETIC NEPHROPATHY
     Dosage: 500 MCG
     Route: 048
     Dates: start: 20070827
  2. FLUVOXAMINE MALEATE [Concomitant]
     Indication: DEPRESSION
     Dosage: 50 MG
     Route: 048
     Dates: start: 20070806
  3. DIOVAN [Concomitant]
     Indication: HYPERTENSION
     Dosage: 80 MG
     Route: 048
     Dates: start: 20070806
  4. ZOLPIDEM [Suspect]
     Indication: DRUG USE FOR UNKNOWN INDICATION
     Dosage: 10 MG
     Route: 048
     Dates: start: 20070903
  5. CALTAN [Concomitant]
     Indication: RENAL FAILURE
     Dosage: 1500 MG
     Route: 048
     Dates: start: 20070820
  6. NEW LECICARBON [Concomitant]
     Indication: CONSTIPATION
     Dosage: 1-2 DOSE FORM PER DAY
     Route: 065
     Dates: start: 20070903

REACTIONS (4)
  - ABNORMAL BEHAVIOUR [None]
  - AMNESIA [None]
  - FRACTURE [None]
  - INTENTIONAL OVERDOSE [None]
